FAERS Safety Report 7907139-4 (Version None)
Quarter: 2011Q4

REPORT INFORMATION
  Report Type: 
  Country: None (occurrence: None)
  Receive Date: 20111110
  Receipt Date: 20110218
  Transmission Date: 20120403
  Serious: No
  Sender: FDA-Public Use
  Company Number: US-ASTRAZENECA-2011SE09750

PATIENT

DRUGS (2)
  1. CRESTOR [Suspect]
     Route: 048
  2. LISINOPRIL [Suspect]
     Indication: CARDIOVASCULAR DISORDER
     Route: 048

REACTIONS (5)
  - CARDIOMEGALY [None]
  - CARDIAC MURMUR [None]
  - DIABETES MELLITUS [None]
  - VARICOSE VEIN [None]
  - BUNDLE BRANCH BLOCK RIGHT [None]
